FAERS Safety Report 7251268-8 (Version None)
Quarter: 2011Q1

REPORT INFORMATION
  Report Type: 
  Country: None (occurrence: None)
  Receive Date: 20110105
  Receipt Date: 20101202
  Transmission Date: 20110831
  Serious: No
  Sender: FDA-Public Use
  Company Number: OMX-2010-00148

PATIENT
  Age: 56 Year
  Sex: Female

DRUGS (2)
  1. EVICEL [Suspect]
     Indication: FACE LIFT
     Dosage: 1 ML
  2. APPLICATOR [Concomitant]

REACTIONS (6)
  - PRODUCT QUALITY ISSUE [None]
  - DRUG INEFFECTIVE [None]
  - POST PROCEDURAL HAEMATOMA [None]
  - AGITATION [None]
  - OFF LABEL USE [None]
  - BLOOD PRESSURE INADEQUATELY CONTROLLED [None]
